FAERS Safety Report 5730886-X (Version None)
Quarter: 2008Q2

REPORT INFORMATION
  Report Type: 
  Country: None (occurrence: None)
  Receive Date: 20080507
  Receipt Date: 20080428
  Transmission Date: 20081010
  Serious: Yes (Death, Life-Threatening)
  Sender: FDA-Public Use
  Company Number: FR-PFIZER INC-2008037285

PATIENT
  Sex: Female

DRUGS (13)
  1. AMLOR [Suspect]
     Route: 048
  2. TAHOR [Suspect]
     Route: 048
  3. SPIRONOLACTONE [Suspect]
     Dosage: DAILY DOSE:50MG
     Route: 048
  4. PLAVIX [Suspect]
     Route: 048
     Dates: start: 20071231, end: 20080111
  5. ASPIRIN [Suspect]
     Route: 048
     Dates: start: 20080108, end: 20080111
  6. PREVISCAN [Suspect]
     Route: 048
     Dates: start: 20080108, end: 20080111
  7. ARIXTRA [Suspect]
     Route: 058
     Dates: start: 20080108, end: 20080110
  8. EFFEXOR [Suspect]
     Route: 048
  9. KERLONE [Suspect]
     Route: 048
  10. TRINIPATCH [Suspect]
     Route: 062
  11. OMEPRAZOLE [Suspect]
     Route: 048
  12. LASILIX [Concomitant]
  13. LOVENOX [Concomitant]
     Dates: start: 20080102, end: 20080107

REACTIONS (2)
  - ANAEMIA [None]
  - MUSCLE HAEMORRHAGE [None]
